FAERS Safety Report 20308049 (Version 1)
Quarter: 2022Q1

REPORT INFORMATION
  Report Type: Spontaneous
  Country: US (occurrence: None)
  Receive Date: 20220107
  Receipt Date: 20220107
  Transmission Date: 20220423
  Serious: Yes (Other)
  Sender: FDA-Public Use
  Company Number: US-FARMAPROD-202112-2235

PATIENT
  Sex: Male

DRUGS (4)
  1. OXERVATE [Suspect]
     Active Substance: CENEGERMIN-BKBJ
     Indication: Neurotrophic keratopathy
     Route: 047
     Dates: start: 20211110
  2. ACETAZOLAMIDE [Concomitant]
     Active Substance: ACETAZOLAMIDE
  3. TIMOLOL MALEATE [Concomitant]
     Active Substance: TIMOLOL MALEATE
  4. ALPHAGAN P [Concomitant]
     Active Substance: BRIMONIDINE TARTRATE

REACTIONS (4)
  - Surgery [Unknown]
  - Eye pain [Recovering/Resolving]
  - Lacrimation increased [Not Recovered/Not Resolved]
  - Ocular hyperaemia [Not Recovered/Not Resolved]
